FAERS Safety Report 9319189 (Version 2)
Quarter: 2013Q3

REPORT INFORMATION
  Report Type: Spontaneous
  Country: US (occurrence: None)
  Receive Date: 20130523
  Receipt Date: 20130709
  Transmission Date: 20140515
  Serious: No
  Sender: FDA-Public Use
  Company Number: ACO_36254_2013

PATIENT
  Sex: Female

DRUGS (1)
  1. AMPYRA (DALFAMPRIDINE) TABLET, 10MG [Suspect]
     Indication: PRODUCT USED FOR UNKNOWN INDICATION

REACTIONS (1)
  - Nephrectomy [None]
